FAERS Safety Report 26179241 (Version 1)
Quarter: 2025Q4

REPORT INFORMATION
  Report Type: Spontaneous
  Country: US (occurrence: US)
  Receive Date: 20251219
  Receipt Date: 20251219
  Transmission Date: 20260117
  Serious: Yes (Life-Threatening, Hospitalization, Other)
  Sender: Kenvue
  Company Number: US-KENVUE-20251204465

PATIENT
  Age: 15 Year
  Sex: Male

DRUGS (1)
  1. DIPHENHYDRAMINE HYDROCHLORIDE [Suspect]
     Active Substance: DIPHENHYDRAMINE HYDROCHLORIDE
     Indication: Product used for unknown indication
     Dosage: 7.5 GRAM
     Route: 065

REACTIONS (12)
  - Seizure [Unknown]
  - Body temperature increased [Unknown]
  - Hypoxia [Unknown]
  - Vomiting [Unknown]
  - Acute respiratory distress syndrome [Unknown]
  - Aspiration [Unknown]
  - Electrocardiogram QRS complex prolonged [Unknown]
  - QRS axis abnormal [Unknown]
  - Acidosis [Unknown]
  - Cardiac arrest [Unknown]
  - Ventricular arrhythmia [Unknown]
  - Intentional overdose [Unknown]
